FAERS Safety Report 22586196 (Version 1)
Quarter: 2023Q2

REPORT INFORMATION
  Report Type: Spontaneous
  Country: GB (occurrence: GB)
  Receive Date: 20230610
  Receipt Date: 20230610
  Transmission Date: 20230721
  Serious: Yes (Life-Threatening)
  Sender: FDA-Public Use
  Company Number: None

PATIENT
  Age: 56 Year
  Sex: Female
  Weight: 54 kg

DRUGS (15)
  1. CLARITHROMYCIN [Suspect]
     Active Substance: CLARITHROMYCIN
     Indication: Product used for unknown indication
     Dosage: 1000 MILLIGRAM DAILY; HOUR(S) PYLO,
     Route: 065
     Dates: start: 20230515, end: 20230522
  2. AMOXICILLIN [Concomitant]
     Active Substance: AMOXICILLIN
     Indication: Product used for unknown indication
     Dosage: 4 DOSAGE FORMS DAILY; HOUR(S) P,
     Dates: start: 20230515, end: 20230522
  3. CREON [Concomitant]
     Active Substance: PANCRELIPASE AMYLASE\PANCRELIPASE LIPASE\PANCRELIPASE PROTEASE
     Indication: Product used for unknown indication
     Dosage: 80000 TO BE TAKEN WITH EACH MEAL AND 40000 WITH...
     Dates: start: 20190916
  4. FOLIC ACID [Concomitant]
     Active Substance: FOLIC ACID
     Indication: Product used for unknown indication
     Dosage: 1 DOSAGE FORMS DAILY;
     Dates: start: 20210805
  5. CARBOHYDRATES\FATTY ACIDS\MINERALS\PROTEIN\VITAMINS [Concomitant]
     Active Substance: CARBOHYDRATES\FATTY ACIDS\MINERALS\PROTEIN\VITAMINS
     Indication: Product used for unknown indication
     Dosage: 250 ML DAILY;
     Dates: start: 20230106, end: 20230525
  6. INVITA-D3 [Concomitant]
     Indication: Product used for unknown indication
     Dosage: 1 DOSAGE FORMS DAILY;
     Dates: start: 20220701
  7. LANSOPRAZOLE [Concomitant]
     Active Substance: LANSOPRAZOLE
     Indication: Product used for unknown indication
     Dosage: 2 DOSAGE FORMS DAILY; HOUR(S) PYLORI ERA,
     Dates: start: 20200618
  8. METRONIDAZOLE [Concomitant]
     Active Substance: METRONIDAZOLE
     Indication: Product used for unknown indication
     Dosage: 3 DOSAGE FORMS DAILY;
     Dates: start: 20230524
  9. ACETAMINOPHEN [Concomitant]
     Active Substance: ACETAMINOPHEN
     Indication: Product used for unknown indication
     Dosage: TWO TO BE TAKEN EVERY 4-6 HOURS UP TO FOUR TIME...
     Dates: start: 20171204
  10. POTASSIUM CHLORIDE [Concomitant]
     Active Substance: POTASSIUM CHLORIDE
     Indication: Product used for unknown indication
     Dosage: 6 DOSAGE FORMS DAILY;
     Dates: start: 20230117
  11. PREDNISOLONE [Concomitant]
     Active Substance: PREDNISOLONE
     Indication: Product used for unknown indication
     Dosage: 6 DOSAGE FORMS DAILY;
     Dates: start: 20230523
  12. RIVAROXABAN [Concomitant]
     Active Substance: RIVAROXABAN
     Indication: Product used for unknown indication
     Dosage: 1 DOSAGE FORMS DAILY; (DOSE AS PER HOSPITAL),
     Dates: start: 20211118
  13. ALBUTEROL [Concomitant]
     Active Substance: ALBUTEROL
     Indication: Product used for unknown indication
     Dosage: ONE OR TWO PUFFS TO BE INHALED UP TO FOUR TIMES...
     Route: 055
     Dates: start: 20180809
  14. SOPROBEC [Concomitant]
     Indication: Product used for unknown indication
     Dosage: CLENIL ALTERNATIVE -  TO BE INHALED TW...
     Route: 055
     Dates: start: 20200331
  15. TRAMADOL [Concomitant]
     Active Substance: TRAMADOL
     Indication: Product used for unknown indication
     Dosage: 4 DOSAGE FORMS DAILY;
     Dates: start: 20171023

REACTIONS (3)
  - Erythema [Unknown]
  - Rash macular [Unknown]
  - Swelling face [Recovered/Resolved]

NARRATIVE: CASE EVENT DATE: 20230515
